FAERS Safety Report 6604583-2 (Version None)
Quarter: 2010Q1

REPORT INFORMATION
  Report Type: 
  Country: None (occurrence: None)
  Receive Date: 20100226
  Receipt Date: 20091229
  Transmission Date: 20100710
  Serious: No
  Sender: FDA-Public Use
  Company Number: A0834312A

PATIENT
  Age: 18 Year
  Sex: Female

DRUGS (2)
  1. LAMICTAL CD [Suspect]
     Indication: BIPOLAR DISORDER
     Dosage: 100MG PER DAY
     Route: 048
     Dates: start: 20091006, end: 20091208
  2. NO CONCURRENT MEDICATION [Concomitant]

REACTIONS (8)
  - DRY SKIN [None]
  - HEADACHE [None]
  - MYALGIA [None]
  - NAUSEA [None]
  - OROPHARYNGEAL BLISTERING [None]
  - PRURITUS [None]
  - RASH [None]
  - RASH PAPULAR [None]
